FAERS Safety Report 4910856-1 (Version None)
Quarter: 2006Q1

REPORT INFORMATION
  Report Type: 
  Country: None (occurrence: None)
  Receive Date: 20060214
  Receipt Date: 20060209
  Transmission Date: 20060701
  Serious: Yes (Life-Threatening, Hospitalization)
  Sender: FDA-Public Use
  Company Number: GR-GLAXOSMITHKLINE-B0410849A

PATIENT
  Age: 2 Year
  Sex: Male

DRUGS (1)
  1. AUGMENTIN '125' [Suspect]
     Indication: DRUG USE FOR UNKNOWN INDICATION
     Dosage: 312.5MG PER DAY
     Route: 048
     Dates: start: 20051101, end: 20051201

REACTIONS (3)
  - BLOOD PRESSURE DECREASED [None]
  - COMA [None]
  - HYPERSENSITIVITY [None]
